FAERS Safety Report 21556610 (Version 2)
Quarter: 2022Q4

REPORT INFORMATION
  Report Type: Spontaneous
  Country: US (occurrence: US)
  Receive Date: 20221104
  Receipt Date: 20221209
  Transmission Date: 20230112
  Serious: No
  Sender: FDA-Public Use
  Company Number: US-Millicent Holdings Ltd.-MILL20220350

PATIENT
  Age: 71 Year
  Sex: Female

DRUGS (2)
  1. INTRAROSA [Suspect]
     Active Substance: PRASTERONE
     Indication: Menopause
     Dosage: 1
     Route: 067
  2. INTRAROSA [Suspect]
     Active Substance: PRASTERONE
     Dosage: 1
     Route: 067
     Dates: start: 202103

REACTIONS (3)
  - Dysuria [Recovered/Resolved]
  - Product physical issue [Unknown]
  - Off label use [Not Recovered/Not Resolved]

NARRATIVE: CASE EVENT DATE: 20210301
